FAERS Safety Report 19909745 (Version 1)
Quarter: 2021Q4

REPORT INFORMATION
  Report Type: Spontaneous
  Country: DE (occurrence: DE)
  Receive Date: 20211003
  Receipt Date: 20211003
  Transmission Date: 20220303
  Serious: Yes (Disabling, Congenital Anomaly)
  Sender: FDA-Public Use
  Company Number: DE-ASCEND THERAPEUTICS US, LLC-2119095

PATIENT
  Sex: Male

DRUGS (4)
  1. ESTROGEL [Suspect]
     Active Substance: ESTRADIOL
     Indication: Product used for unknown indication
     Route: 065
     Dates: start: 2014, end: 2021
  2. ESTROGEL [Suspect]
     Active Substance: ESTRADIOL
  3. ESTRADIOL [Suspect]
     Active Substance: ESTRADIOL
     Route: 065
     Dates: start: 2014, end: 2021
  4. PROGESTERONE [Concomitant]
     Active Substance: PROGESTERONE
     Route: 065
     Dates: start: 2017, end: 2021

REACTIONS (4)
  - Oestradiol increased [Unknown]
  - Gynaecomastia [Unknown]
  - Growth disorder [Unknown]
  - Foetal exposure timing unspecified [None]

NARRATIVE: CASE EVENT DATE: 20140101
